FAERS Safety Report 5990033-6 (Version None)
Quarter: 2008Q4

REPORT INFORMATION
  Report Type: 
  Country: None (occurrence: None)
  Receive Date: 20081208
  Receipt Date: 20081125
  Transmission Date: 20090506
  Serious: Yes (Hospitalization)
  Sender: FDA-Public Use
  Company Number: 430015K07USA

PATIENT
  Age: 41 Year
  Sex: Female

DRUGS (7)
  1. NOVANTRONE [Suspect]
     Indication: MULTIPLE SCLEROSIS
     Dosage: INTRAVENOUS (NOT OTHERWISE SPECIFIED)
     Route: 042
     Dates: start: 20060515, end: 20070110
  2. REBIF [Suspect]
     Indication: MULTIPLE SCLEROSIS
     Dosage: 44 MCG, 3 IN 1 WEEKS, SUBCUTANEOUS
     Route: 058
     Dates: start: 20051003, end: 20071201
  3. IMIPRAMINE [Concomitant]
  4. ELMIRON [Concomitant]
  5. NEURONTIN [Concomitant]
  6. BACLOFEN [Concomitant]
  7. NALTREXONE (NALTREXONE) [Concomitant]

REACTIONS (8)
  - BARTHOLINITIS [None]
  - ESCHERICHIA INFECTION [None]
  - HYPERTENSION [None]
  - IMMUNODEFICIENCY COMMON VARIABLE [None]
  - NEUTROPENIA [None]
  - PHARYNGITIS STREPTOCOCCAL [None]
  - SIALOADENITIS [None]
  - WHITE BLOOD CELL COUNT DECREASED [None]
